FAERS Safety Report 12329722 (Version 1)
Quarter: 2016Q2

REPORT INFORMATION
  Report Type: Other
  Country: None (occurrence: US)
  Receive Date: 20160503
  Receipt Date: 20160503
  Transmission Date: 20160815
  Serious: Yes (Other)
  Sender: FDA-Public Use
  Company Number: US-GUTHY-RENKER LLC-1051380

PATIENT
  Age: 52 Year
  Sex: Female

DRUGS (2)
  1. IT COSMETICS BYE BYE FOUNDATION TAN WITH SPF 50 [Suspect]
     Active Substance: TITANIUM DIOXIDE\ZINC OXIDE
     Indication: PROPHYLAXIS AGAINST SOLAR RADIATION
     Route: 061
     Dates: start: 20160403, end: 20160403
  2. BENADRYL PRN [Concomitant]

REACTIONS (5)
  - Application site swelling [None]
  - Application site dryness [None]
  - Eye swelling [Recovering/Resolving]
  - Heart rate increased [None]
  - Pruritus [None]

NARRATIVE: CASE EVENT DATE: 20160403
